FAERS Safety Report 19100477 (Version 2)
Quarter: 2021Q2

REPORT INFORMATION
  Report Type: Report from Study
  Country: None (occurrence: CO)
  Receive Date: 20210407
  Receipt Date: 20210429
  Transmission Date: 20210717
  Serious: Yes (Other)
  Sender: FDA-Public Use
  Company Number: CO-ABBVIE-21K-036-3847328-00

PATIENT
  Age: 53 Year
  Sex: Male
  Weight: 65 kg

DRUGS (3)
  1. HUMIRA [Suspect]
     Active Substance: ADALIMUMAB
     Indication: RHEUMATOID ARTHRITIS
     Route: 058
     Dates: start: 20111209
  2. HUMIRA [Suspect]
     Active Substance: ADALIMUMAB
     Indication: RHEUMATOID ARTHRITIS
     Route: 058
     Dates: end: 20210309
  3. HUMIRA [Suspect]
     Active Substance: ADALIMUMAB
     Route: 058
     Dates: start: 20210421

REACTIONS (4)
  - Joint swelling [Recovering/Resolving]
  - Ankle fracture [Recovering/Resolving]
  - Road traffic accident [Recovering/Resolving]
  - Joint dislocation [Recovering/Resolving]

NARRATIVE: CASE EVENT DATE: 20210405
